FAERS Safety Report 5482912-3 (Version None)
Quarter: 2007Q4

REPORT INFORMATION
  Report Type: 
  Country: None (occurrence: None)
  Receive Date: 20071011
  Receipt Date: 20071002
  Transmission Date: 20080405
  Serious: Yes (Hospitalization)
  Sender: FDA-Public Use
  Company Number: ES-ASTRAZENECA-2007AC01906

PATIENT
  Age: 86 Year
  Sex: Female

DRUGS (10)
  1. ATACAND [Suspect]
     Route: 048
     Dates: start: 20061119
  2. ALDACTONE [Interacting]
     Dates: start: 20061119
  3. LANIRAPID [Concomitant]
     Route: 048
  4. SINGULAIR [Concomitant]
     Indication: ASTHMA
     Route: 048
  5. LORAMET [Concomitant]
     Route: 048
  6. TROMALYT [Concomitant]
     Indication: ATRIAL FIBRILLATION
     Route: 048
  7. OMEPRAZOLE [Concomitant]
     Route: 048
  8. SEGURIL [Concomitant]
     Route: 048
  9. ROCALTROL [Concomitant]
     Route: 048
  10. MANIDON [Concomitant]
     Route: 048

REACTIONS (3)
  - DRUG INTERACTION [None]
  - HYPERKALAEMIA [None]
  - RENAL FAILURE ACUTE [None]
